FAERS Safety Report 5008136-1 (Version None)
Quarter: 2006Q2

REPORT INFORMATION
  Report Type: 
  Country: None (occurrence: None)
  Receive Date: 20060404
  Receipt Date: 20051213
  Transmission Date: 20061013
  Serious: Yes (Other)
  Sender: FDA-Public Use
  Company Number: 2005112716

PATIENT
  Age: 47 Year
  Sex: Female

DRUGS (2)
  1. GEODON [Suspect]
     Indication: ILL-DEFINED DISORDER
     Dates: end: 20050307
  2. ALL OTHER THERAPEUTIC PRODUCTS (ALL OTHER THERAPEUTIC PRODUCTS) [Concomitant]

REACTIONS (1)
  - ELECTROCARDIOGRAM QT CORRECTED INTERVAL PROLONGED [None]
